FAERS Safety Report 7715044-1 (Version None)
Quarter: 2011Q3

REPORT INFORMATION
  Report Type: 
  Country: None (occurrence: None)
  Receive Date: 20110829
  Receipt Date: 20110720
  Transmission Date: 20111222
  Serious: No
  Sender: FDA-Public Use
  Company Number: US-ASTRAZENECA-2011SE43797

PATIENT
  Age: 63 Year
  Sex: Male

DRUGS (1)
  1. VIMOVO [Suspect]
     Dosage: TOTAL DAILY DOSAGE: 500MG/20MG.
     Route: 048

REACTIONS (1)
  - PAIN IN EXTREMITY [None]
